FAERS Safety Report 6670720-7 (Version None)
Quarter: 2010Q2

REPORT INFORMATION
  Report Type: 
  Country: None (occurrence: None)
  Receive Date: 20100407
  Receipt Date: 20100331
  Transmission Date: 20101027
  Serious: Yes (Other)
  Sender: FDA-Public Use
  Company Number: US-ASTRAZENECA-2009SE23989

PATIENT
  Age: 20660 Day
  Sex: Female
  Weight: 106.6 kg

DRUGS (10)
  1. SEROQUEL [Suspect]
     Indication: TACHYPHRENIA
     Dosage: 25 MG- 400 MG, ONE TABLET AT BEDTIME
     Route: 048
     Dates: start: 19990101
  2. ZYPREXA [Concomitant]
     Dates: start: 19990101
  3. VISTARIL [Concomitant]
     Dates: start: 19970101
  4. DESYREL [Concomitant]
     Dates: start: 19970101
  5. PROZAC [Concomitant]
     Dates: start: 19970101
  6. LOXITANE [Concomitant]
     Dates: start: 19970101
  7. TENORMIN [Concomitant]
     Dates: start: 20060101
  8. NORVASC [Concomitant]
     Dates: start: 20060101
  9. TRICOR [Concomitant]
     Dates: start: 20060101
  10. ZESTRIL [Concomitant]
     Dates: start: 20060101

REACTIONS (2)
  - NEUROPATHY PERIPHERAL [None]
  - TYPE 2 DIABETES MELLITUS [None]
